FAERS Safety Report 7166284-4 (Version None)
Quarter: 2010Q4

REPORT INFORMATION
  Report Type: 
  Country: None (occurrence: None)
  Receive Date: 20101216
  Receipt Date: 20101203
  Transmission Date: 20110411
  Serious: Yes (Hospitalization, Other)
  Sender: FDA-Public Use
  Company Number: US-ELI_LILLY_AND_COMPANY-US201006002512

PATIENT
  Sex: Female

DRUGS (21)
  1. FORTEO [Suspect]
     Indication: OSTEOPOROSIS
     Dosage: 20 UG, DAILY (1/D)
     Route: 058
     Dates: end: 20100501
  2. FORTEO [Suspect]
  3. NEXIUM [Concomitant]
     Dosage: 40 MG, UNK
  4. ADVAIR [Concomitant]
     Dosage: UNK, 2/D
     Route: 055
  5. ZETIA [Concomitant]
     Dosage: 10 MG, UNK
  6. CLARINEX [Concomitant]
  7. GLUCOSAMINE CHONDROITIN [Concomitant]
  8. MSM [Concomitant]
     Dosage: UNK, 3/D
  9. COENZYME [Concomitant]
     Dosage: 50 MG, DAILY (1/D)
  10. CALCIUM [Concomitant]
  11. MAGNESIUM [Concomitant]
  12. ASCORBIC ACID [Concomitant]
     Dosage: 1000 MG, 3/D
  13. VITAMIN B COMPLEX [Concomitant]
     Dosage: UNK, DAILY (1/D)
  14. POTASSIUM CHLORIDE [Concomitant]
     Dosage: 99 MG, DAILY (1/D)
  15. VITAMINS [Concomitant]
     Dosage: UNK, DAILY (1/D)
  16. CELNIUM [Concomitant]
     Dosage: 30 MG, DAILY (1/D)
  17. ECHINACEA /01323501/ [Concomitant]
  18. VENTOLIN HFA [Concomitant]
     Dosage: UNK, AS NEEDED
  19. VITAMIN D [Concomitant]
  20. CLARITIN [Concomitant]
     Dosage: UNK, AS NEEDED
  21. ACIDOPHILUS [Concomitant]
     Dosage: 10 MG, DAILY (1/D)

REACTIONS (6)
  - CHEST PAIN [None]
  - DEHYDRATION [None]
  - FALL [None]
  - HIP FRACTURE [None]
  - UPPER LIMB FRACTURE [None]
  - VIRAL INFECTION [None]
